FAERS Safety Report 8135635-6 (Version None)
Quarter: 2012Q1

REPORT INFORMATION
  Report Type: 
  Country: None (occurrence: None)
  Receive Date: 20120103
  Receipt Date: 20111024
  Transmission Date: 20120608
  Serious: No
  Sender: FDA-Public Use
  Company Number: AE-2011-002653

PATIENT
  Age: 58 Year
  Sex: Female
  Weight: 89.3586 kg

DRUGS (5)
  1. MULTIVITAMIN [Concomitant]
  2. ACETAMINOPHEN [Concomitant]
  3. COPEGUS [Concomitant]
  4. INCIVEK [Suspect]
     Dosage: 2250 MG (750 MG, 1 IN 8 HR), ORAL
     Route: 048
     Dates: start: 20110926
  5. PEG-INTRON [Concomitant]

REACTIONS (7)
  - DECREASED APPETITE [None]
  - RECTAL HAEMORRHAGE [None]
  - COUGH [None]
  - HEADACHE [None]
  - WEIGHT DECREASED [None]
  - MUSCULOSKELETAL CHEST PAIN [None]
  - ANORECTAL DISCOMFORT [None]
